FAERS Safety Report 21647804 (Version 2)
Quarter: 2022Q4

REPORT INFORMATION
  Report Type: Other
  Country: US (occurrence: None)
  Receive Date: 20221128
  Receipt Date: 20221208
  Transmission Date: 20230112
  Serious: Yes (Other)
  Sender: FDA-Public Use
  Company Number: US-ROCHE-2888124

PATIENT
  Age: 55 Year
  Sex: Male
  Weight: 65.830 kg

DRUGS (7)
  1. OCREVUS [Suspect]
     Active Substance: OCRELIZUMAB
     Indication: Relapsing-remitting multiple sclerosis
     Dosage: YES
     Route: 042
     Dates: start: 2018
  2. OCREVUS [Suspect]
     Active Substance: OCRELIZUMAB
     Indication: Relapsing multiple sclerosis
  3. BUTALBITAL, ACETAMINOPHEN, AND CAFFEINE [Concomitant]
     Active Substance: ACETAMINOPHEN\BUTALBITAL\CAFFEINE
     Indication: Migraine
     Route: 048
     Dates: start: 2017
  4. IMITREX [Concomitant]
     Active Substance: SUMATRIPTAN SUCCINATE
     Indication: Migraine
     Dates: start: 2017
  5. VITAMIN D3 [Concomitant]
     Active Substance: CHOLECALCIFEROL
     Indication: Osteoporosis
     Dates: start: 2000
  6. LIDOCAINE [Concomitant]
     Active Substance: LIDOCAINE
     Indication: Pain
  7. ROXICODONE [Concomitant]
     Active Substance: OXYCODONE HYDROCHLORIDE

REACTIONS (13)
  - Pain [Not Recovered/Not Resolved]
  - Electric shock sensation [Not Recovered/Not Resolved]
  - Insomnia [Not Recovered/Not Resolved]
  - Vertigo [Not Recovered/Not Resolved]
  - Fall [Unknown]
  - Haematemesis [Recovered/Resolved]
  - Infection [Recovered/Resolved]
  - Illness [Unknown]
  - Anxiety [Unknown]
  - Confusional state [Unknown]
  - Off label use [Unknown]
  - Hemiplegia [Unknown]
  - Memory impairment [Not Recovered/Not Resolved]

NARRATIVE: CASE EVENT DATE: 20201201
